FAERS Safety Report 4477437-8 (Version None)
Quarter: 2004Q4

REPORT INFORMATION
  Report Type: 
  Country: None (occurrence: None)
  Receive Date: 20041008
  Receipt Date: 20040924
  Transmission Date: 20050328
  Serious: Yes (Hospitalization)
  Sender: FDA-Public Use
  Company Number: 2004-03227

PATIENT
  Age: 61 Year
  Sex: Male

DRUGS (1)
  1. IMMUCYST (BCG - IT (CONNAUGHT)), AVENTIS PASTEUR LTD., LOT NOT REP, NR [Suspect]
     Indication: BLADDER CANCER
     Dosage: 81.0 MG B. IN. BLADDER
     Dates: start: 20040910

REACTIONS (4)
  - ANAEMIA [None]
  - BLADDER TAMPONADE [None]
  - PROCEDURAL COMPLICATION [None]
  - URINARY BLADDER HAEMORRHAGE [None]
